FAERS Safety Report 12137399 (Version 1)
Quarter: 2016Q1

REPORT INFORMATION
  Report Type: Spontaneous
  Country: GB (occurrence: GB)
  Receive Date: 20160302
  Receipt Date: 20160302
  Transmission Date: 20160526
  Serious: Yes (Hospitalization)
  Sender: FDA-Public Use
  Company Number: GB-TEVA-638512ACC

PATIENT
  Age: 85 Year
  Sex: Male

DRUGS (7)
  1. NICORANDIL [Concomitant]
     Active Substance: NICORANDIL
  2. AMLODIPINE [Concomitant]
     Active Substance: AMLODIPINE BESYLATE
  3. ISOSORBIDE. [Concomitant]
     Active Substance: ISOSORBIDE
  4. SIMVASTATIN. [Concomitant]
     Active Substance: SIMVASTATIN
  5. TAMSULOSIN [Concomitant]
     Active Substance: TAMSULOSIN
  6. WARFARIN [Suspect]
     Active Substance: WARFARIN
     Indication: ATRIAL FIBRILLATION
     Dosage: MAY HAVE CONFUSED 3MG AND 1MG TABLETS.
     Route: 048
  7. BRICANYL [Concomitant]
     Active Substance: TERBUTALINE SULFATE

REACTIONS (5)
  - Abdominal pain [Unknown]
  - Haematuria [Recovered/Resolved]
  - Haemoptysis [Recovered/Resolved]
  - Gastric ulcer [Unknown]
  - International normalised ratio increased [Unknown]
